FAERS Safety Report 18193167 (Version 2)
Quarter: 2020Q3

REPORT INFORMATION
  Report Type: Spontaneous
  Country: DE (occurrence: DE)
  Receive Date: 20200825
  Receipt Date: 20200911
  Transmission Date: 20201103
  Serious: Yes (Hospitalization)
  Sender: FDA-Public Use
  Company Number: DE-ARBOR PHARMACEUTICALS, LLC-DE-2020ARB000663

PATIENT
  Age: 73 Year
  Sex: Male

DRUGS (4)
  1. TRIPTODUR [Suspect]
     Active Substance: TRIPTORELIN
  2. TRIPTODUR [Suspect]
     Active Substance: TRIPTORELIN
  3. TRIPTODUR [Suspect]
     Active Substance: TRIPTORELIN
     Indication: PROSTATE CANCER METASTATIC
     Dosage: UNK
     Route: 030
     Dates: start: 20200518, end: 20200518
  4. PROLIA [Concomitant]
     Active Substance: DENOSUMAB
     Indication: OSTEOPOROSIS PROPHYLAXIS
     Dosage: UNK

REACTIONS (13)
  - Pain in extremity [Unknown]
  - Product administered at inappropriate site [Unknown]
  - Product use issue [Unknown]
  - Gout [Unknown]
  - Bone pain [Unknown]
  - Hot flush [Unknown]
  - Fluid retention [Unknown]
  - Liquid product physical issue [Unknown]
  - Hypertonic bladder [Unknown]
  - Cystitis [Unknown]
  - Nocturia [Recovering/Resolving]
  - Oedema [Unknown]
  - Myalgia [Unknown]

NARRATIVE: CASE EVENT DATE: 2020
